FAERS Safety Report 4906965-3 (Version None)
Quarter: 2006Q1

REPORT INFORMATION
  Report Type: 
  Country: None (occurrence: None)
  Receive Date: 20060207
  Receipt Date: 20060125
  Transmission Date: 20060701
  Serious: No
  Sender: FDA-Public Use
  Company Number: IT200512003170

PATIENT
  Age: 74 Year
  Sex: Male

DRUGS (6)
  1. ZYPREXA [Suspect]
     Indication: SCHIZOPHRENIA
     Dosage: 30 MG, DAILY (1/D), ORAL
     Route: 048
     Dates: start: 20031001, end: 20051107
  2. DOMPERIDONE (DOMPERIDONE) [Concomitant]
  3. BIPERIDEN (BIPERIDEN) [Concomitant]
  4. CLOTIAPINE (CLOTIAPINE) [Concomitant]
  5. RABEPRAZOLE (RABEPRAZOLE) [Concomitant]
  6. LASIX [Concomitant]

REACTIONS (2)
  - ECCHYMOSIS [None]
  - THROMBOCYTOPENIA [None]
